FAERS Safety Report 8059947-X (Version None)
Quarter: 2012Q1

REPORT INFORMATION
  Report Type: 
  Country: None (occurrence: None)
  Receive Date: 20120120
  Receipt Date: 20120113
  Transmission Date: 20120608
  Serious: Yes (Other)
  Sender: FDA-Public Use
  Company Number: PHHY2012AR003392

PATIENT
  Sex: Male

DRUGS (1)
  1. TRILEPTAL [Suspect]
     Indication: NEUROPATHY PERIPHERAL
     Dosage: 2 DF, DAILY

REACTIONS (5)
  - NEUROPATHY PERIPHERAL [None]
  - BALANCE DISORDER [None]
  - FALL [None]
  - PARAESTHESIA [None]
  - DRUG INEFFECTIVE [None]
